FAERS Safety Report 26178836 (Version 1)
Quarter: 2025Q4

REPORT INFORMATION
  Report Type: Spontaneous
  Country: US (occurrence: US)
  Receive Date: 20251219
  Receipt Date: 20251219
  Transmission Date: 20260117
  Serious: No
  Sender: KARYOPHARM THERAPEUTICS
  Company Number: US-KARYOPHARM-2025KPT101075

PATIENT

DRUGS (23)
  1. SELINEXOR [Suspect]
     Active Substance: SELINEXOR
     Indication: Plasma cell myeloma
     Dosage: 40 MG WEEKLY
     Route: 048
     Dates: start: 20251125, end: 2025
  2. ACETAMINOPHEN [Concomitant]
     Active Substance: ACETAMINOPHEN
  3. ACYCLOVIR [Concomitant]
     Active Substance: ACYCLOVIR
  4. ALBUTEROL SULFATE [Concomitant]
     Active Substance: ALBUTEROL SULFATE
  5. ATORVASTATIN CALCIUM [Concomitant]
     Active Substance: ATORVASTATIN CALCIUM
  6. BUPROPION HYDROCHLORIDE [Concomitant]
     Active Substance: BUPROPION HYDROCHLORIDE
  7. COLESTIPOL HYDROCHLORIDE [Concomitant]
     Active Substance: COLESTIPOL HYDROCHLORIDE
  8. EPINEPHRINE [Concomitant]
     Active Substance: EPINEPHRINE
  9. GABAPENTIN [Concomitant]
     Active Substance: GABAPENTIN
  10. GEMFIBROZIL [Concomitant]
     Active Substance: GEMFIBROZIL
  11. KLOR-CON M20 [Concomitant]
     Active Substance: POTASSIUM CHLORIDE
  12. LIDOCAINE [Concomitant]
     Active Substance: LIDOCAINE
  13. LEVOFLOXACIN [Concomitant]
     Active Substance: LEVOFLOXACIN
  14. LUPRON DEPOT [Concomitant]
     Active Substance: LEUPROLIDE ACETATE
  15. METOPROLOL TARTRATE [Concomitant]
     Active Substance: METOPROLOL TARTRATE
  16. MOUNJARO [Concomitant]
     Active Substance: TIRZEPATIDE
  17. NYSTATIN [Concomitant]
     Active Substance: NYSTATIN
  18. OMEPRAZOLE [Concomitant]
     Active Substance: OMEPRAZOLE
  19. POMALYST [Concomitant]
     Active Substance: POMALIDOMIDE
  20. PROCHLORPERAZINE MALEATE [Concomitant]
     Active Substance: PROCHLORPERAZINE MALEATE
  21. TRIAMCINOLONE ACETONIDE [Concomitant]
     Active Substance: TRIAMCINOLONE ACETONIDE
  22. VRAYLAR [Concomitant]
     Active Substance: CARIPRAZINE
  23. XARELTO [Concomitant]
     Active Substance: RIVAROXABAN

REACTIONS (1)
  - Pneumonia [Unknown]

NARRATIVE: CASE EVENT DATE: 20250101
